FAERS Safety Report 7102725-6 (Version None)
Quarter: 2010Q4

REPORT INFORMATION
  Report Type: 
  Country: None (occurrence: None)
  Receive Date: 20101115
  Receipt Date: 20101102
  Transmission Date: 20110411
  Serious: Yes (Other)
  Sender: FDA-Public Use
  Company Number: PHHY2010US68824

PATIENT
  Sex: Female
  Weight: 109.75 kg

DRUGS (4)
  1. EXJADE [Suspect]
     Indication: IRON OVERLOAD
     Dosage: 500 MG, TID
     Route: 048
     Dates: start: 20070102
  2. PHENERGAN [Concomitant]
     Indication: NAUSEA
     Dosage: 25 MG, PRN
     Route: 048
  3. RESTORIL [Concomitant]
     Indication: INSOMNIA
     Route: 048
  4. FLEXERIL [Concomitant]
     Indication: MYALGIA
     Dosage: 10 MG, UNK
     Route: 048

REACTIONS (1)
  - BACK PAIN [None]
